FAERS Safety Report 5156110-7 (Version None)
Quarter: 2006Q4

REPORT INFORMATION
  Report Type: 
  Country: None (occurrence: None)
  Receive Date: 20061122
  Receipt Date: 20061113
  Transmission Date: 20070319
  Serious: Yes (Other)
  Sender: FDA-Public Use
  Company Number: PHNU2006DE03730

PATIENT
  Sex: Male

DRUGS (5)
  1. SANDIMMUNE [Suspect]
     Indication: RENAL TRANSPLANT
     Dosage: UNK, UNK
     Route: 065
  2. CELLCEPT [Concomitant]
     Indication: RENAL TRANSPLANT
     Dosage: 720 MG/DAY
     Route: 065
  3. CORTISONE ACETATE [Suspect]
     Indication: RENAL TRANSPLANT
     Route: 065
  4. ENALAPRIL MALEATE [Concomitant]
     Route: 065
  5. CARVEDILOL [Concomitant]
     Dosage: UNK, UNK
     Route: 065

REACTIONS (1)
  - TENDON RUPTURE [None]
